FAERS Safety Report 14036790 (Version 2)
Quarter: 2017Q4

REPORT INFORMATION
  Report Type: Spontaneous
  Country: US (occurrence: IE)
  Receive Date: 20171003
  Receipt Date: 20171016
  Transmission Date: 20180321
  Serious: Yes (Death)
  Sender: FDA-Public Use
  Company Number: IE-CONCORDIA PHARMACEUTICALS INC.-GSH201709-005590

PATIENT
  Age: 52 Year
  Sex: Female
  Weight: 58 kg

DRUGS (4)
  1. HYDROXYCHLOROQUINE [Suspect]
     Active Substance: HYDROXYCHLOROQUINE
     Indication: RHEUMATOID ARTHRITIS
     Dates: start: 1995
  2. WARFARIN [Concomitant]
     Active Substance: WARFARIN
  3. BISOPROLOL [Concomitant]
     Active Substance: BISOPROLOL
  4. PREDNISOLONE. [Concomitant]
     Active Substance: PREDNISOLONE
     Dosage: 5?10  MG
     Route: 048

REACTIONS (3)
  - Ventricular arrhythmia [Fatal]
  - Restrictive cardiomyopathy [Fatal]
  - Cardiotoxicity [Fatal]
